FAERS Safety Report 4463735-0 (Version None)
Quarter: 2004Q3

REPORT INFORMATION
  Report Type: 
  Country: None (occurrence: None)
  Receive Date: 20040929
  Receipt Date: 20040913
  Transmission Date: 20050211
  Serious: Yes (Hospitalization)
  Sender: FDA-Public Use
  Company Number: B0311815A

PATIENT
  Age: 19 Year
  Sex: Female
  Weight: 36.9228 kg

DRUGS (3)
  1. PAXIL [Suspect]
     Indication: PERSONALITY DISORDER
     Dosage: ORAL
     Route: 048
     Dates: start: 20021001, end: 20021218
  2. METHOTRIMEPRAZINE (FORMULATION UNKNOWN) (METHOTRIMEPRAZINE) [Suspect]
     Dosage: 85 MG PER DAY ORAL
     Route: 048
     Dates: start: 20021218, end: 20021218
  3. FLUNITRAZEPAM (FORMULATION UNKNOWN) (FLUNITRAZEPAM) [Suspect]
     Dosage: 14 MG PER DAY ORAL
     Route: 048

REACTIONS (8)
  - ATRIAL FIBRILLATION [None]
  - BRADYCARDIA [None]
  - COMA [None]
  - DYSPNOEA [None]
  - HYPOTENSION [None]
  - HYPOTHERMIA [None]
  - MULTIPLE DRUG OVERDOSE [None]
  - PCO2 INCREASED [None]
